FAERS Safety Report 25838952 (Version 2)
Quarter: 2025Q4

REPORT INFORMATION
  Report Type: Spontaneous
  Country: US (occurrence: US)
  Receive Date: 20250924
  Receipt Date: 20251014
  Transmission Date: 20260117
  Serious: No
  Sender: TOLMAR
  Company Number: US-Tolmar-TLM-2025-06270

PATIENT

DRUGS (2)
  1. FENSOLVI [Suspect]
     Active Substance: LEUPROLIDE ACETATE
     Indication: Precocious puberty
     Dosage: DOSE NOT ADMINISTERED?EXPIRATION DATE: OCT-2026; SEP-2026; SEP-2026
  2. DEVICE [Suspect]
     Active Substance: DEVICE
     Indication: Precocious puberty
     Dosage: EXPIRATION DATE: OCT-2026; SEP-2026; SEP-2026

REACTIONS (3)
  - Incorrect dose administered [Unknown]
  - Product administration error [Unknown]
  - Product quality issue [Unknown]
